FAERS Safety Report 4326828-4 (Version None)
Quarter: 2004Q1

REPORT INFORMATION
  Report Type: 
  Country: None (occurrence: None)
  Receive Date: 20040322
  Receipt Date: 20031124
  Transmission Date: 20041129
  Serious: Yes (Hospitalization)
  Sender: FDA-Public Use
  Company Number: PHEH2003US10867

PATIENT
  Age: 67 Year
  Sex: Male

DRUGS (1)
  1. ZOMETA [Suspect]
     Indication: METASTASES TO BONE
     Dosage: 4 MG, QMO, INTRAVENOUS
     Route: 042
     Dates: start: 20020501, end: 20030401

REACTIONS (2)
  - HYPOKALAEMIA [None]
  - HYPOPHOSPHATAEMIA [None]
